FAERS Safety Report 4866411-5 (Version None)
Quarter: 2005Q4

REPORT INFORMATION
  Report Type: 
  Country: None (occurrence: None)
  Receive Date: 20051227
  Receipt Date: 20051005
  Transmission Date: 20060501
  Serious: Yes (Hospitalization, Disabling)
  Sender: FDA-Public Use
  Company Number: US-MERCK-0510USA04441

PATIENT
  Age: 62 Year
  Sex: Female
  Weight: 67 kg

DRUGS (7)
  1. VIOXX [Suspect]
     Indication: ARTHRITIS
     Route: 048
     Dates: start: 19991013, end: 20011013
  2. PRILOSEC [Concomitant]
     Route: 048
  3. QUININE SULFATE [Concomitant]
     Route: 048
  4. FLEXERIL [Concomitant]
     Route: 065
  5. MEVACOR [Concomitant]
     Route: 065
  6. DYAZIDE [Concomitant]
     Route: 048
  7. CARDIZEM CD [Concomitant]
     Route: 048

REACTIONS (9)
  - CARDIAC DISORDER [None]
  - CATARACT [None]
  - CORONARY ARTERY DISEASE [None]
  - DIABETES MELLITUS NON-INSULIN-DEPENDENT [None]
  - DIVERTICULITIS [None]
  - EYE DISORDER [None]
  - MYOCARDIAL INFARCTION [None]
  - NEPHROLITHIASIS [None]
  - OSTEOARTHRITIS [None]
